FAERS Safety Report 24160382 (Version 2)
Quarter: 2024Q4

REPORT INFORMATION
  Report Type: Spontaneous
  Country: AU (occurrence: AU)
  Receive Date: 20240801
  Receipt Date: 20241004
  Transmission Date: 20250115
  Serious: Yes (Life-Threatening, Other)
  Sender: GLAXOSMITHKLINE
  Company Number: AU-GSKCCFAPAC-Case-02032550_AE-85966

PATIENT

DRUGS (1)
  1. VENTOLIN [Suspect]
     Active Substance: ALBUTEROL SULFATE
     Indication: Product used for unknown indication
     Dosage: UNK, QD

REACTIONS (2)
  - Near death experience [Unknown]
  - Panic reaction [Unknown]
